FAERS Safety Report 5150869-0 (Version None)
Quarter: 2006Q4

REPORT INFORMATION
  Report Type: 
  Country: None (occurrence: None)
  Receive Date: 20061108
  Receipt Date: 20061026
  Transmission Date: 20070319
  Serious: Yes (Hospitalization, Other)
  Sender: FDA-Public Use
  Company Number: 2006SP004181

PATIENT
  Sex: Female

DRUGS (3)
  1. TEMODAL [Suspect]
     Indication: GLIOBLASTOMA
     Dosage: 140 MG; QD; PO
     Route: 048
     Dates: start: 20060701, end: 20060801
  2. RADIATION THERAPY [Concomitant]
  3. SOLUPRED [Concomitant]

REACTIONS (4)
  - HEPATIC STEATOSIS [None]
  - HEPATITIS [None]
  - LYMPHOCYTE COUNT DECREASED [None]
  - URINARY TRACT INFECTION [None]
